FAERS Safety Report 7797028-0 (Version None)
Quarter: 2011Q4

REPORT INFORMATION
  Report Type: 
  Country: None (occurrence: None)
  Receive Date: 20111005
  Receipt Date: 20110928
  Transmission Date: 20120403
  Serious: Yes (Disabling)
  Sender: FDA-Public Use
  Company Number: FR-PFIZER INC-2011232497

PATIENT
  Age: 72 Year
  Sex: Male

DRUGS (8)
  1. FOLIC ACID [Concomitant]
     Indication: COLORECTAL CANCER METASTATIC
     Dosage: UNK
     Dates: start: 20101018, end: 20110525
  2. CAMPTOSAR [Suspect]
     Indication: COLORECTAL CANCER METASTATIC
     Dosage: UNK
     Route: 042
     Dates: start: 20101130, end: 20110525
  3. COUMADIN [Concomitant]
  4. ELOXATIN [Suspect]
     Indication: COLORECTAL CANCER METASTATIC
     Dosage: 140 MG, CYCLIC
     Route: 042
     Dates: start: 20101018, end: 20110428
  5. FLUOROURACIL [Suspect]
     Indication: COLORECTAL CANCER METASTATIC
     Dosage: 700 MG, CYCLIC
     Route: 042
     Dates: start: 20101018, end: 20110525
  6. ZOLPIDEM [Concomitant]
  7. XANAX [Concomitant]
  8. AVASTIN [Suspect]
     Indication: COLORECTAL CANCER METASTATIC
     Dosage: 285 MG, CYCLIC
     Route: 042
     Dates: start: 20101018, end: 20110525

REACTIONS (1)
  - PARAESTHESIA [None]
